FAERS Safety Report 9693376 (Version 1)
Quarter: 2013Q4

REPORT INFORMATION
  Report Type: Spontaneous
  Country: US (occurrence: US)
  Receive Date: 20131118
  Receipt Date: 20131118
  Transmission Date: 20140711
  Serious: Yes (Hospitalization)
  Sender: FDA-Public Use
  Company Number: US-ABBVIE-13P-163-1167749-00

PATIENT
  Age: 10 Year
  Sex: Male
  Weight: 68.1 kg

DRUGS (8)
  1. DEPAKOTE ER [Suspect]
     Indication: AGGRESSION
     Dates: start: 20130920
  2. ZOLOFT [Concomitant]
     Indication: PAEDIATRIC AUTOIMMUNE NEUROPSYCHIATRIC DISORDERS ASSOCIATED WITH STREPTOCOCCAL INFECTION
     Dates: start: 201206
  3. BIAXIN [Concomitant]
     Indication: PRODUCT USED FOR UNKNOWN INDICATION
     Dosage: EVERY MORNING
     Dates: end: 2013
  4. LORAZEPAM [Concomitant]
     Indication: PRODUCT USED FOR UNKNOWN INDICATION
     Dosage: Q 6 HRS AS NEEDED
     Dates: end: 2013
  5. RISPERIDONE [Concomitant]
     Indication: PAEDIATRIC AUTOIMMUNE NEUROPSYCHIATRIC DISORDERS ASSOCIATED WITH STREPTOCOCCAL INFECTION
     Dosage: EVENINGS
     Dates: start: 201206
  6. CLONIDINE [Concomitant]
     Indication: PAEDIATRIC AUTOIMMUNE NEUROPSYCHIATRIC DISORDERS ASSOCIATED WITH STREPTOCOCCAL INFECTION
     Dosage: EVENINGS
     Dates: start: 201206
  7. SINGULAIR [Concomitant]
     Indication: PRODUCT USED FOR UNKNOWN INDICATION
     Dosage: EVENINGS
     Dates: end: 2013
  8. UNKNOWN ALLERGY MEDICATION [Concomitant]
     Indication: PRODUCT USED FOR UNKNOWN INDICATION
     Dates: end: 2013

REACTIONS (11)
  - Paediatric autoimmune neuropsychiatric disorders associated with streptococcal infection [Unknown]
  - Psychiatric symptom [Unknown]
  - Faecal incontinence [Unknown]
  - Urinary incontinence [Unknown]
  - Regressive behaviour [Unknown]
  - Abnormal behaviour [Unknown]
  - Abnormal behaviour [Unknown]
  - Aggression [Recovered/Resolved]
  - Abnormal behaviour [Recovered/Resolved]
  - Aggression [Recovered/Resolved]
  - Unevaluable event [Unknown]
